FAERS Safety Report 17667883 (Version 4)
Quarter: 2020Q3

REPORT INFORMATION
  Report Type: Report from Study
  Country: US (occurrence: US)
  Receive Date: 20200414
  Receipt Date: 20200924
  Transmission Date: 20201102
  Serious: Yes (Hospitalization)
  Sender: FDA-Public Use
  Company Number: US-GLAXOSMITHKLINE-US2019TSO230397

PATIENT
  Sex: Female
  Weight: 58 kg

DRUGS (4)
  1. NIRAPARIB [Suspect]
     Active Substance: NIRAPARIB
     Dosage: 200 MG
     Dates: start: 20191011
  2. NIRAPARIB [Suspect]
     Active Substance: NIRAPARIB
     Dosage: 200 MG
     Dates: start: 20191010
  3. NIRAPARIB [Suspect]
     Active Substance: NIRAPARIB
     Indication: OVARIAN CANCER
     Dosage: 300 MG, QD
     Route: 048
  4. NIRAPARIB [Suspect]
     Active Substance: NIRAPARIB
     Dosage: 200 MG, QD
     Route: 048

REACTIONS (8)
  - Dizziness [Not Recovered/Not Resolved]
  - Headache [Not Recovered/Not Resolved]
  - Nasopharyngitis [Recovering/Resolving]
  - Full blood count increased [Unknown]
  - Infection [Unknown]
  - Cough [Unknown]
  - Dyspnoea [Unknown]
  - Musculoskeletal stiffness [Unknown]
